FAERS Safety Report 8805808 (Version 3)
Quarter: 2013Q4

REPORT INFORMATION
  Report Type: Spontaneous
  Country: KW (occurrence: KW)
  Receive Date: 20120925
  Receipt Date: 20131126
  Transmission Date: 20140711
  Serious: Yes (Hospitalization)
  Sender: FDA-Public Use
  Company Number: KW-009507513-1209KWT008729

PATIENT
  Age: 6 Year
  Sex: Female

DRUGS (2)
  1. SINGULAIR [Suspect]
     Indication: ASTHMA
     Dosage: 5 MG, QD
     Route: 048
     Dates: start: 201204, end: 201209
  2. PULMICORT [Concomitant]
     Indication: ASTHMA
     Route: 055

REACTIONS (6)
  - Psychotic disorder [Recovering/Resolving]
  - Hallucination [Recovering/Resolving]
  - Abnormal behaviour [Recovering/Resolving]
  - Sleep disorder [Recovering/Resolving]
  - Nightmare [Recovering/Resolving]
  - Personality change [Recovering/Resolving]
